FAERS Safety Report 6208006-7 (Version None)
Quarter: 2009Q2

REPORT INFORMATION
  Report Type: 
  Country: None (occurrence: None)
  Receive Date: 20090529
  Receipt Date: 20090323
  Transmission Date: 20091009
  Serious: No
  Sender: FDA-Public Use
  Company Number: A0774833A

PATIENT
  Age: 78 Year
  Sex: Female

DRUGS (6)
  1. VENTOLIN [Suspect]
     Indication: BRONCHITIS
     Dosage: 2PUFF AS REQUIRED
     Route: 055
     Dates: start: 20060201
  2. UNSPECIFIED ANTIBIOTIC [Suspect]
     Route: 048
     Dates: start: 20090301
  3. BENADRYL [Suspect]
  4. TUMS [Suspect]
     Route: 048
  5. METFORMIN HCL [Concomitant]
  6. JANUMET [Concomitant]

REACTIONS (7)
  - ASTHENIA [None]
  - DISCOMFORT [None]
  - FEELING ABNORMAL [None]
  - FEELING OF DESPAIR [None]
  - HYPERHIDROSIS [None]
  - NERVOUSNESS [None]
  - PALPITATIONS [None]
